FAERS Safety Report 26133447 (Version 1)
Quarter: 2025Q4

REPORT INFORMATION
  Report Type: Report from Study
  Country: PK (occurrence: PK)
  Receive Date: 20251209
  Receipt Date: 20251209
  Transmission Date: 20260118
  Serious: Yes (Death, Hospitalization, Other)
  Sender: ROCHE
  Company Number: PK-ROCHE-10000452211

PATIENT
  Age: 48 Year
  Sex: Female

DRUGS (1)
  1. HERCEPTIN [Suspect]
     Active Substance: TRASTUZUMAB
     Indication: Breast cancer metastatic
     Dosage: 18 CYCLES?PATIENT RECEIVED TOTAL 10 CYCLES TILL 30-SEP-2025
     Route: 058
     Dates: start: 20250325

REACTIONS (7)
  - Death [Fatal]
  - Gastrointestinal disorder [Unknown]
  - Abdominal pain [Unknown]
  - Asthenia [Unknown]
  - Feeding disorder [Unknown]
  - Abdominal distension [Unknown]
  - Abdominal rigidity [Unknown]

NARRATIVE: CASE EVENT DATE: 20251022
